FAERS Safety Report 6831957-7 (Version None)
Quarter: 2010Q3

REPORT INFORMATION
  Report Type: 
  Country: None (occurrence: None)
  Receive Date: 20100712
  Receipt Date: 20100701
  Transmission Date: 20110219
  Serious: Yes (Death)
  Sender: FDA-Public Use
  Company Number: TW-BAXTER-2010BH016251

PATIENT
  Sex: Female

DRUGS (6)
  1. DIANEAL [Suspect]
     Indication: PERITONEAL DIALYSIS
     Route: 033
     Dates: start: 20061201
  2. DIANEAL [Suspect]
     Route: 033
     Dates: start: 20061201
  3. DIANEAL [Suspect]
     Indication: PERITONEAL DIALYSIS
     Route: 033
     Dates: start: 20061201
  4. DIANEAL [Suspect]
     Route: 033
     Dates: start: 20061201
  5. EXTRANEAL [Suspect]
     Indication: PERITONEAL DIALYSIS
     Route: 033
     Dates: start: 20061201
  6. EXTRANEAL [Suspect]
     Route: 033
     Dates: start: 20061201

REACTIONS (1)
  - MULTI-ORGAN FAILURE [None]
